FAERS Safety Report 5941033-3 (Version None)
Quarter: 2008Q4

REPORT INFORMATION
  Report Type: 
  Country: None (occurrence: None)
  Receive Date: 20081104
  Receipt Date: 20080829
  Transmission Date: 20090506
  Serious: No
  Sender: FDA-Public Use
  Company Number: US-B.I. PHARMACEUTICALS,INC./RIDGEFIELD-2008-BP-13868BP

PATIENT
  Sex: Male

DRUGS (8)
  1. SPIRIVA [Suspect]
     Indication: CHRONIC OBSTRUCTIVE PULMONARY DISEASE
     Dosage: 18MCG
     Route: 055
     Dates: start: 20080101
  2. MIRAPEX [Concomitant]
     Route: 048
  3. PLAVIX [Concomitant]
     Route: 048
  4. VERAPAMIL [Concomitant]
     Route: 048
  5. DIAZOLE [Concomitant]
     Route: 048
  6. OMEPRAZOLE [Concomitant]
     Route: 048
  7. POTASSIUM CHLORIDE [Concomitant]
     Dosage: 40MG
     Route: 048
  8. PREDNISONE TAB [Concomitant]
     Route: 048

REACTIONS (3)
  - ANGLE CLOSURE GLAUCOMA [None]
  - DYSPNOEA [None]
  - FATIGUE [None]
